FAERS Safety Report 7750712-7 (Version None)
Quarter: 2011Q3

REPORT INFORMATION
  Report Type: 
  Country: None (occurrence: None)
  Receive Date: 20110914
  Receipt Date: 20110907
  Transmission Date: 20111222
  Serious: Yes (Hospitalization)
  Sender: FDA-Public Use
  Company Number: CA-JNJFOC-20110610810

PATIENT
  Sex: Female
  Weight: 83 kg

DRUGS (3)
  1. USTEKINUMAB [Suspect]
     Indication: PSORIASIS
     Route: 058
     Dates: start: 20110131
  2. USTEKINUMAB [Suspect]
     Route: 058
     Dates: start: 20110401
  3. USTEKINUMAB [Suspect]
     Route: 058
     Dates: start: 20060515

REACTIONS (3)
  - NERVE COMPRESSION [None]
  - SEPTIC SHOCK [None]
  - MENINGITIS [None]
